FAERS Safety Report 8833054 (Version 1)
Quarter: 2012Q4

REPORT INFORMATION
  Report Type: 
  Country: CO (occurrence: CO)
  Receive Date: 20121010
  Receipt Date: 20121010
  Transmission Date: 20130627
  Serious: Yes (Hospitalization)
  Sender: FDA-Public Use
  Company Number: CO-PFIZER INC-2012249026

PATIENT
  Age: 76 Year
  Sex: Female

DRUGS (1)
  1. CARDURAN NEO [Suspect]
     Dosage: 4 mg, UNK
     Dates: start: 20120622

REACTIONS (2)
  - Syncope [Not Recovered/Not Resolved]
  - Cerebral haematoma [Not Recovered/Not Resolved]
